FAERS Safety Report 10971560 (Version 1)
Quarter: 2015Q1

REPORT INFORMATION
  Report Type: Report from Study
  Country: US (occurrence: US)
  Receive Date: 20150331
  Receipt Date: 20150331
  Transmission Date: 20150721
  Serious: Yes (Other)
  Sender: FDA-Public Use
  Company Number: US-GILEAD-2015-0132605

PATIENT
  Age: 65 Year
  Sex: Male

DRUGS (5)
  1. COUMADIN [Interacting]
     Active Substance: WARFARIN SODIUM
     Indication: HYPERTENSION
     Dosage: UNK
     Route: 048
     Dates: start: 1995
  2. LEDIPASVIR/SOFOSBUVIR [Suspect]
     Active Substance: LEDIPASVIR\SOFOSBUVIR
     Indication: CHRONIC HEPATITIS C
     Dosage: 1 DF, UNK
     Route: 048
     Dates: start: 20150215
  3. OMEPRAZOLE. [Concomitant]
     Active Substance: OMEPRAZOLE
     Indication: DYSPEPSIA
     Dosage: UNK
     Dates: start: 2012
  4. ACCUPRIL [Concomitant]
     Active Substance: QUINAPRIL HYDROCHLORIDE
     Indication: HYPERTENSION
     Dosage: UNK
     Route: 048
     Dates: start: 1995
  5. TOPROL XL [Concomitant]
     Active Substance: METOPROLOL SUCCINATE
     Indication: HYPERTENSION
     Dosage: UNK
     Route: 048
     Dates: start: 1995

REACTIONS (7)
  - Arthralgia [Not Recovered/Not Resolved]
  - Headache [Unknown]
  - Drug interaction [Recovered/Resolved]
  - Nasopharyngitis [Unknown]
  - Pulmonary congestion [Unknown]
  - Musculoskeletal pain [Not Recovered/Not Resolved]
  - International normalised ratio decreased [Recovered/Resolved]

NARRATIVE: CASE EVENT DATE: 201502
